FAERS Safety Report 5297738-3 (Version None)
Quarter: 2007Q2

REPORT INFORMATION
  Report Type: 
  Country: None (occurrence: None)
  Receive Date: 20070406
  Receipt Date: 20070312
  Transmission Date: 20071010
  Serious: Yes (Hospitalization)
  Sender: FDA-Public Use
  Company Number: 6031013

PATIENT
  Age: 27 Year
  Sex: Male

DRUGS (5)
  1. BLEOMYCIN [Suspect]
     Indication: LYMPHADENOPATHY
     Dosage: (4 CYCLES)
     Dates: end: 20050801
  2. ETOPOSIDE [Suspect]
     Indication: LYMPHADENOPATHY
     Dates: end: 20050801
  3. CISPLATIN [Suspect]
     Indication: LYMPHADENOPATHY
     Dates: end: 20051201
  4. PACLITAXEL [Suspect]
     Indication: LYMPHADENOPATHY
     Dates: start: 20051201
  5. IFOSFAMIDE [Concomitant]

REACTIONS (4)
  - BLOOD PH DECREASED [None]
  - PNEUMONITIS [None]
  - RESPIRATORY FAILURE [None]
  - SHOCK [None]
